FAERS Safety Report 8203235-5 (Version None)
Quarter: 2012Q1

REPORT INFORMATION
  Report Type: 
  Country: None (occurrence: None)
  Receive Date: 20120312
  Receipt Date: 20120229
  Transmission Date: 20120608
  Serious: Yes (Other)
  Sender: FDA-Public Use
  Company Number: CA-ROCHE-1044787

PATIENT
  Sex: Female
  Weight: 49.94 kg

DRUGS (7)
  1. PREDNISONE [Concomitant]
  2. ARAVA [Concomitant]
  3. ACTEMRA [Suspect]
     Indication: RHEUMATOID ARTHRITIS
     Route: 042
  4. SYNTHROID [Concomitant]
  5. NAPROSYN [Concomitant]
  6. NEXIUM [Concomitant]
  7. ZOPICLONE [Concomitant]

REACTIONS (1)
  - INTRAOCULAR PRESSURE INCREASED [None]
